FAERS Safety Report 17334375 (Version 1)
Quarter: 2020Q1

REPORT INFORMATION
  Report Type: Spontaneous
  Country: US (occurrence: US)
  Receive Date: 20200128
  Receipt Date: 20200128
  Transmission Date: 20200409
  Serious: No
  Sender: FDA-Public Use
  Company Number: US-BAYER-2020-015065

PATIENT
  Age: 68 Year
  Sex: Male

DRUGS (7)
  1. FINASTERIDE. [Concomitant]
     Active Substance: FINASTERIDE
     Dosage: UNK
  2. ALEVE BACK AND MUSCLE PAIN [Suspect]
     Active Substance: NAPROXEN SODIUM
     Indication: PAIN
     Dosage: 2 DF AT 7PM
     Route: 048
     Dates: start: 20200126, end: 20200126
  3. LISINOPRIL. [Concomitant]
     Active Substance: LISINOPRIL
     Dosage: UNK
  4. SIMVASTATIN. [Concomitant]
     Active Substance: SIMVASTATIN
     Dosage: UNK
  5. METFORMIN [Concomitant]
     Active Substance: METFORMIN HYDROCHLORIDE
     Dosage: UNK
  6. AMLODIPINE [Concomitant]
     Active Substance: AMLODIPINE BESYLATE
     Dosage: UNK
  7. CAFFEINE. [Concomitant]
     Active Substance: CAFFEINE
     Dosage: UNK

REACTIONS (2)
  - Agitation [Unknown]
  - Insomnia [Unknown]

NARRATIVE: CASE EVENT DATE: 20200126
